FAERS Safety Report 21462301 (Version 1)
Quarter: 2022Q4

REPORT INFORMATION
  Report Type: Spontaneous
  Country: US (occurrence: US)
  Receive Date: 20221016
  Receipt Date: 20221016
  Transmission Date: 20230112
  Serious: No
  Sender: FDA-Public Use
  Company Number: US-ELI_LILLY_AND_COMPANY-US202210005744

PATIENT
  Age: 40 Year
  Sex: Female

DRUGS (1)
  1. TALTZ [Suspect]
     Active Substance: IXEKIZUMAB
     Indication: Product used for unknown indication
     Dosage: 160 MG, OTHER (LOADING DOSE)
     Route: 065
     Dates: start: 20220930

REACTIONS (5)
  - Injection site rash [Unknown]
  - Injection site bruising [Unknown]
  - Injection site warmth [Unknown]
  - Injection site erythema [Unknown]
  - Injection site pain [Unknown]

NARRATIVE: CASE EVENT DATE: 20221010
